FAERS Safety Report 21083327 (Version 1)
Quarter: 2022Q3

REPORT INFORMATION
  Report Type: Other
  Country: FR (occurrence: FR)
  Receive Date: 20220714
  Receipt Date: 20220714
  Transmission Date: 20221027
  Serious: Yes (Hospitalization)
  Sender: FDA-Public Use
  Company Number: None

PATIENT

DRUGS (9)
  1. RUXOLITINIB [Suspect]
     Active Substance: RUXOLITINIB
     Indication: Acute graft versus host disease
     Dosage: 5 MG, COMPRIM?
     Route: 065
     Dates: start: 20211007
  2. NOXAFIL [Suspect]
     Active Substance: POSACONAZOLE
     Indication: Acute graft versus host disease
     Dosage: UNK, 200MG X 3/J
     Route: 065
     Dates: start: 20211007
  3. VALACYCLOVIR HYDROCHLORIDE [Concomitant]
     Active Substance: VALACYCLOVIR HYDROCHLORIDE
     Indication: Acute graft versus host disease
     Dosage: 200MG X 3/J
     Route: 065
  4. BARACLUDE [Concomitant]
     Active Substance: ENTECAVIR
     Indication: Acute graft versus host disease
     Dosage: UNK, 200MG X 3/J
     Route: 065
  5. PENICILLIN V [Concomitant]
     Active Substance: PENICILLIN V
     Indication: Acute graft versus host disease
     Dosage: UNK, 200MG X 3/J
     Route: 065
  6. REFRESH CELLUVISC [Concomitant]
     Active Substance: CARBOXYMETHYLCELLULOSE SODIUM
     Indication: Product used for unknown indication
     Dosage: UNK
     Route: 065
  7. PREDNISONE [Concomitant]
     Active Substance: PREDNISONE
     Indication: Acute graft versus host disease
     Dosage: UNK, ? LA DEMANDE
     Route: 065
  8. ACETAMINOPHEN [Concomitant]
     Active Substance: ACETAMINOPHEN
     Indication: Pain
     Dosage: UNK
     Route: 065
  9. BACTRIM [Concomitant]
     Active Substance: SULFAMETHOXAZOLE\TRIMETHOPRIM
     Indication: Acute graft versus host disease
     Dosage: 200MG X 3/J
     Route: 065

REACTIONS (1)
  - Agranulocytosis [Not Recovered/Not Resolved]

NARRATIVE: CASE EVENT DATE: 20220607
